FAERS Safety Report 19114501 (Version 1)
Quarter: 2021Q2

REPORT INFORMATION
  Report Type: Spontaneous
  Country: US (occurrence: US)
  Receive Date: 20210409
  Receipt Date: 20210409
  Transmission Date: 20210717
  Serious: No
  Sender: FDA-Public Use
  Company Number: US-BAYER-2021-119691

PATIENT
  Age: 12 Year
  Sex: Female

DRUGS (2)
  1. CLARITIN [Suspect]
     Active Substance: LORATADINE
     Dosage: 0.5 DF, QD
     Route: 048
     Dates: start: 20210408
  2. CLARITIN [Suspect]
     Active Substance: LORATADINE
     Dosage: 2 DF, QD
     Route: 048
     Dates: start: 20210408

REACTIONS (2)
  - Expired product administered [Unknown]
  - Incorrect dose administered [Unknown]

NARRATIVE: CASE EVENT DATE: 20210408
